FAERS Safety Report 9297926 (Version 1)
Quarter: 2013Q2

REPORT INFORMATION
  Report Type: Spontaneous
  Country: US (occurrence: US)
  Receive Date: 20130520
  Receipt Date: 20130520
  Transmission Date: 20140414
  Serious: Yes (Hospitalization, Other)
  Sender: FDA-Public Use
  Company Number: US-PFIZER INC-2013154384

PATIENT
  Age: 48 Year
  Sex: Male
  Weight: 104.31 kg

DRUGS (10)
  1. LYRICA [Suspect]
     Indication: PAIN
     Dosage: 50 MG, 2X/DAY
     Route: 048
     Dates: start: 20130508
  2. LYRICA [Interacting]
     Indication: LUMBAR SPINAL STENOSIS
     Dosage: 0.5 DF, 2X/DAY
     Dates: start: 201305, end: 20130516
  3. LYRICA [Interacting]
     Indication: INTERVERTEBRAL DISC PROTRUSION
  4. LYRICA [Interacting]
     Indication: SPINAL OSTEOARTHRITIS
  5. XANAX [Interacting]
     Indication: ANXIETY
     Dosage: 2.5 MG, 1X/DAY
  6. OXYCODONE HYDROCHLORIDE [Interacting]
     Indication: PAIN
     Dosage: 50 MG, UNK
  7. OXYCODONE HYDROCHLORIDE [Interacting]
     Dosage: 15 MG, UNK
  8. CARVEDILOL [Interacting]
     Indication: BLOOD PRESSURE ABNORMAL
     Dosage: 0.5 DF, 2X/DAY
  9. PREVACID [Interacting]
     Indication: ABDOMINAL DISCOMFORT
     Dosage: UNK
  10. ROXICODONE [Concomitant]
     Indication: PAIN
     Dosage: 15 MG, UNK

REACTIONS (13)
  - Pyrexia [Recovered/Resolved]
  - Lung infection [Unknown]
  - Pneumonia [Unknown]
  - Pulmonary thrombosis [Unknown]
  - Rhabdomyolysis [Unknown]
  - Helicobacter gastritis [Unknown]
  - Angina pectoris [Unknown]
  - Drug interaction [Unknown]
  - Chest pain [Not Recovered/Not Resolved]
  - Therapeutic response unexpected [Unknown]
  - Drug ineffective [Unknown]
  - Intentional drug misuse [Unknown]
  - Wrong technique in drug usage process [None]
